FAERS Safety Report 10881462 (Version 1)
Quarter: 2015Q1

REPORT INFORMATION
  Report Type: Spontaneous
  Country: US (occurrence: None)
  Receive Date: 20150225
  Receipt Date: 20150225
  Transmission Date: 20150721
  Serious: No
  Sender: FDA-Public Use
  Company Number: None

PATIENT
  Age: 62 Year
  Sex: Female

DRUGS (10)
  1. GABAPENTIN. [Concomitant]
     Active Substance: GABAPENTIN
  2. ESTRADIOL. [Concomitant]
     Active Substance: ESTRADIOL
  3. AMPYRA [Suspect]
     Active Substance: DALFAMPRIDINE
     Indication: MULTIPLE SCLEROSIS
     Route: 048
     Dates: start: 201201, end: 201302
  4. AMPYRA [Concomitant]
     Active Substance: DALFAMPRIDINE
  5. DIAZEPAM. [Concomitant]
     Active Substance: DIAZEPAM
  6. PROZAC [Concomitant]
     Active Substance: FLUOXETINE HYDROCHLORIDE
  7. AVONEX [Concomitant]
     Active Substance: INTERFERON BETA-1A
  8. ADVAIR DISKUS [Concomitant]
     Active Substance: FLUTICASONE PROPIONATE\SALMETEROL XINAFOATE
  9. METHYLPHENIDATE [Concomitant]
     Active Substance: METHYLPHENIDATE
  10. ALBUTERNOL HFA [Concomitant]

REACTIONS (5)
  - Fatigue [None]
  - Memory impairment [None]
  - Stress [None]
  - Emotional disorder [None]
  - Depression [None]

NARRATIVE: CASE EVENT DATE: 20130318
